FAERS Safety Report 16476539 (Version 2)
Quarter: 2019Q3

REPORT INFORMATION
  Report Type: Spontaneous
  Country: US (occurrence: US)
  Receive Date: 20190626
  Receipt Date: 20190704
  Transmission Date: 20191004
  Serious: Yes (Other)
  Sender: FDA-Public Use
  Company Number: US-LUPIN PHARMACEUTICALS INC.-2019-03193

PATIENT
  Sex: Male
  Weight: 88.44 kg

DRUGS (3)
  1. LISINOPRIL TABLETS USP, 5MG [Suspect]
     Active Substance: LISINOPRIL
     Indication: HYPERTENSION
     Dosage: 5 MILLIGRAM, QD
     Route: 048
     Dates: start: 20190321
  2. MARIJUANA [Interacting]
     Active Substance: CANNABIS SATIVA SUBSP. INDICA TOP
     Indication: PRODUCT USED FOR UNKNOWN INDICATION
     Dosage: UNK
     Route: 065
  3. LISINOPRIL TABLETS USP, 5MG [Interacting]
     Active Substance: LISINOPRIL
     Dosage: 0.5 DOSAGE FORM, QD
     Route: 048

REACTIONS (4)
  - Drug interaction [Unknown]
  - Product substitution issue [Unknown]
  - Blood pressure increased [Unknown]
  - Therapeutic product effect delayed [Unknown]
